FAERS Safety Report 8470764-9 (Version None)
Quarter: 2012Q2

REPORT INFORMATION
  Report Type: 
  Country: None (occurrence: None)
  Receive Date: 20120627
  Receipt Date: 20120618
  Transmission Date: 20120825
  Serious: Yes (Hospitalization)
  Sender: FDA-Public Use
  Company Number: US-BAYER-2012-062117

PATIENT
  Age: 23 Year
  Sex: Female
  Weight: 112.93 kg

DRUGS (29)
  1. YASMIN [Suspect]
  2. FERROUS GLUCONATE [Concomitant]
     Dosage: 325 MG, UNK
     Route: 048
     Dates: start: 20080604
  3. NEXIUM [Concomitant]
     Dosage: 40 MG, UNK
     Route: 048
     Dates: start: 20080607
  4. CIPROFLOXACIN HCL [Concomitant]
     Dosage: 400 MG, UNK
     Route: 042
     Dates: start: 20080606
  5. OXYCODONE HCL [Concomitant]
     Indication: PAIN
     Dosage: 5/325MG EVERY 4 HOURS PRN
     Route: 048
     Dates: start: 20080606
  6. VICODIN [Concomitant]
     Indication: PAIN
  7. PHENERGAN [Concomitant]
     Indication: NAUSEA
  8. PROMETHAZINE [Concomitant]
     Dosage: 25 MG, UNK
     Route: 048
     Dates: start: 20080607
  9. ZAZOLE [Concomitant]
     Dosage: 0.4% / 45 GM
     Route: 067
     Dates: start: 20080620
  10. SOLU-MEDROL [Concomitant]
     Indication: HYPERSENSITIVITY
     Dosage: 125 MG, ONCE
     Route: 042
     Dates: start: 20080811
  11. BENADRYL [Concomitant]
     Dosage: 50 MG, EVERY 6 HOURS IF NEEDED
     Route: 048
     Dates: start: 20080606
  12. MORPHINE [Concomitant]
     Dosage: 4 MG, UNK
     Route: 042
     Dates: start: 20080811
  13. CIPROFLOXACIN [Concomitant]
     Dosage: 500 MG, UNK
     Route: 048
     Dates: start: 20080810
  14. TORADOL [Concomitant]
     Dosage: 30 MG, UNK
     Route: 042
     Dates: start: 20080811
  15. MOXIFLOXACIN [Concomitant]
     Indication: PNEUMONIA
     Dosage: 400 MG, QD
     Route: 048
     Dates: start: 20080811
  16. ALBUTEROL [Concomitant]
     Indication: DYSPNOEA
     Dosage: 90 MCG/ 2 PUFFS
     Dates: start: 20080811
  17. AVELOX [Concomitant]
     Dosage: 400 MG, UNK
  18. YAZ [Suspect]
  19. ASCORBIC ACID [Concomitant]
  20. DROSPIRENONE AND ETHINYL ESTRADIOL [Suspect]
  21. METFORMIN HCL [Concomitant]
     Dosage: 850 MG, UNK
     Route: 048
     Dates: start: 20080620
  22. BENADRYL [Concomitant]
     Indication: PRURITUS
     Dosage: 50 MG, ONCE
     Route: 042
     Dates: start: 20080811
  23. IRON [Concomitant]
  24. ZOFRAN [Concomitant]
     Dosage: 4 MG, UNK
     Route: 042
     Dates: start: 20080811
  25. CIPROFLOXACIN [Concomitant]
     Dosage: 500 MG, UNK
     Route: 048
     Dates: start: 20080607
  26. FLAGYL [Concomitant]
  27. PHENERGAN [Concomitant]
     Indication: VOMITING
  28. MELOXICAM [Concomitant]
     Indication: PAIN
     Dosage: 15 MG, QD
     Route: 048
     Dates: start: 20080811
  29. METRONIDAZOLE [Concomitant]
     Dosage: 500 MG, UNK
     Route: 048
     Dates: start: 20080810

REACTIONS (2)
  - PULMONARY EMBOLISM [None]
  - PULMONARY INFARCTION [None]
